FAERS Safety Report 5799611-0 (Version None)
Quarter: 2008Q3

REPORT INFORMATION
  Report Type: 
  Country: None (occurrence: None)
  Receive Date: 20080703
  Receipt Date: 20080627
  Transmission Date: 20090109
  Serious: Yes (Death, Hospitalization)
  Sender: FDA-Public Use
  Company Number: PHHY2008IN12366

PATIENT
  Sex: Female

DRUGS (1)
  1. ASUNRA [Suspect]
     Dosage: 100/400MG

REACTIONS (3)
  - DEATH [None]
  - HAEMORRHAGE [None]
  - LIMB OPERATION [None]
